FAERS Safety Report 25503396 (Version 1)
Quarter: 2025Q3

REPORT INFORMATION
  Report Type: Spontaneous
  Country: US (occurrence: US)
  Receive Date: 20250702
  Receipt Date: 20250702
  Transmission Date: 20251020
  Serious: Yes (Disabling, Other)
  Sender: ALVOGEN
  Company Number: US-ALVOGEN-2025098249

PATIENT
  Sex: Female
  Weight: 63.5 kg

DRUGS (1)
  1. TERIPARATIDE [Suspect]
     Active Substance: TERIPARATIDE
     Indication: Osteoporosis
     Dosage: 2.24 ML
     Dates: start: 202502, end: 202503

REACTIONS (2)
  - Accident [Unknown]
  - Back injury [Unknown]

NARRATIVE: CASE EVENT DATE: 20250101
